FAERS Safety Report 18765421 (Version 2)
Quarter: 2021Q1

REPORT INFORMATION
  Report Type: Other
  Country: US (occurrence: US)
  Receive Date: 20210120
  Receipt Date: 20210202
  Transmission Date: 20210419
  Serious: Yes (Hospitalization, Other)
  Sender: FDA-Public Use
  Company Number: US-AMAG PHARMACEUTICALS, INC.-AMAG202100070

PATIENT
  Age: 29 Year
  Sex: Female

DRUGS (1)
  1. MAKENA [Suspect]
     Active Substance: HYDROXYPROGESTERONE CAPROATE
     Indication: PREMATURE DELIVERY
     Route: 058
     Dates: start: 20201207, end: 20201228

REACTIONS (4)
  - Cervical dilatation [Recovered/Resolved]
  - Amniotic cavity infection [Unknown]
  - Premature delivery [Recovered/Resolved]
  - Induced labour [Recovered/Resolved]

NARRATIVE: CASE EVENT DATE: 20201231
